FAERS Safety Report 16263280 (Version 1)
Quarter: 2019Q2

REPORT INFORMATION
  Report Type: Spontaneous
  Country: US (occurrence: US)
  Receive Date: 20190502
  Receipt Date: 20190502
  Transmission Date: 20190711
  Serious: Yes (Life-Threatening, Other)
  Sender: FDA-Public Use
  Company Number: US-ACTELION-A-CH2019-189550

PATIENT
  Age: 28 Year
  Sex: Female

DRUGS (1)
  1. EPOPROSTENOL SODIUM. [Suspect]
     Active Substance: EPOPROSTENOL SODIUM
     Indication: PULMONARY HYPERTENSION
     Dosage: UNK
     Route: 042

REACTIONS (6)
  - Hypoxia [Not Recovered/Not Resolved]
  - Cardiac arrest [Recovered/Resolved]
  - Procedural hypotension [Unknown]
  - Exposure during pregnancy [Unknown]
  - Foetal death [Unknown]
  - Uterine dilation and evacuation [Unknown]
